FAERS Safety Report 9378844 (Version 3)
Quarter: 2013Q3

REPORT INFORMATION
  Report Type: Spontaneous
  Country: US (occurrence: US)
  Receive Date: 20130702
  Receipt Date: 20130906
  Transmission Date: 20140515
  Serious: Yes (Other)
  Sender: FDA-Public Use
  Company Number: US-BIOGENIDEC-2013BI058998

PATIENT
  Age: 56 Year
  Sex: Female

DRUGS (2)
  1. TYSABRI [Suspect]
     Indication: MULTIPLE SCLEROSIS
     Route: 042
     Dates: start: 20130306
  2. AMPYRA [Concomitant]

REACTIONS (3)
  - Convulsion [Recovered/Resolved]
  - Infusion related reaction [Recovered/Resolved]
  - Anxiety [Not Recovered/Not Resolved]
